FAERS Safety Report 4628074-3 (Version None)
Quarter: 2005Q2

REPORT INFORMATION
  Report Type: 
  Country: None (occurrence: None)
  Receive Date: 20050406
  Receipt Date: 20050329
  Transmission Date: 20051028
  Serious: Yes (Death, Hospitalization, Other)
  Sender: FDA-Public Use
  Company Number: A0551635A

PATIENT
  Age: 94 Year
  Sex: Female
  Weight: 43.2 kg

DRUGS (1)
  1. BC ARTHRITIS STRENGTH POWDER [Suspect]
     Indication: ARTHRITIS
     Route: 048
     Dates: start: 20031101

REACTIONS (3)
  - HYPERTENSION [None]
  - LEUKAEMIA [None]
  - WEIGHT DECREASED [None]
